FAERS Safety Report 11995872 (Version 3)
Quarter: 2016Q1

REPORT INFORMATION
  Report Type: Spontaneous
  Country: CH (occurrence: CH)
  Receive Date: 20160203
  Receipt Date: 20160218
  Transmission Date: 20160526
  Serious: Yes (Hospitalization)
  Sender: FDA-Public Use
  Company Number: CH-TEVA-630597ISR

PATIENT
  Age: 80 Year
  Sex: Female

DRUGS (6)
  1. ASPIRIN CARDIO [Concomitant]
     Active Substance: ASPIRIN
     Dosage: 100 MILLIGRAM DAILY; CONTINUING
     Route: 048
  2. CO-AMOXI-MEPHA 1000 LACTAB [Suspect]
     Active Substance: AMOXICILLIN\CLAVULANIC ACID
     Dosage: 1000 MILLIGRAM DAILY; STRENGTH OF 1 DF: CLAVULUNIC ACID 125MG+ AMOXICILLIN 875MG
     Route: 048
     Dates: start: 20151022, end: 20151029
  3. ATACAND [Concomitant]
     Active Substance: CANDESARTAN CILEXETIL
     Dosage: 8 MILLIGRAM DAILY; CONTINUING
     Route: 048
  4. DAFALGAN [Concomitant]
     Active Substance: ACETAMINOPHEN
     Dosage: 3 GRAM DAILY; CONTINUING
     Route: 048
  5. AUGMENTIN [Suspect]
     Active Substance: AMOXICILLIN\CLAVULANATE POTASSIUM
     Dosage: 3 DOSAGE FORMS DAILY; 1 DF = 2000 MG AMOXICILLIN, 200 MG CLAVULANIC ACID
     Route: 041
     Dates: start: 20151028, end: 20160103
  6. MEFENACID [Concomitant]
     Active Substance: MEFENAMIC ACID
     Dosage: 1500 MILLIGRAM DAILY; CONTINUING
     Route: 048

REACTIONS (2)
  - Pneumonia [Unknown]
  - Meningitis aseptic [Recovered/Resolved]

NARRATIVE: CASE EVENT DATE: 201511
